FAERS Safety Report 24551583 (Version 2)
Quarter: 2025Q3

REPORT INFORMATION
  Report Type: Report from Study
  Country: US (occurrence: US)
  Receive Date: 20241026
  Receipt Date: 20250809
  Transmission Date: 20251020
  Serious: Yes (Hospitalization, Other)
  Sender: ALEXION PHARMACEUTICALS
  Company Number: US-AstraZeneca-CH-00722903A

PATIENT
  Age: 56 Year
  Sex: Female

DRUGS (6)
  1. OSIMERTINIB [Suspect]
     Active Substance: OSIMERTINIB
     Indication: Non-small cell lung cancer
     Dosage: 80 MILLIGRAM, QD
     Dates: start: 20240924
  2. ELIQUIS [Concomitant]
     Active Substance: APIXABAN
  3. LEVETIRACETAM [Concomitant]
     Active Substance: LEVETIRACETAM
  4. MEMANTINE [Concomitant]
     Active Substance: MEMANTINE
  5. Amocerebral plus [Concomitant]
  6. Rmhtnf [Concomitant]

REACTIONS (2)
  - Deep vein thrombosis [Recovered/Resolved]
  - Loss of consciousness [Unknown]

NARRATIVE: CASE EVENT DATE: 20240929
